FAERS Safety Report 14333441 (Version 1)
Quarter: 2017Q4

REPORT INFORMATION
  Report Type: Spontaneous
  Country: FR (occurrence: FR)
  Receive Date: 20171228
  Receipt Date: 20171228
  Transmission Date: 20180321
  Serious: Yes (Hospitalization)
  Sender: FDA-Public Use
  Company Number: FR-BAYER-2017-247208

PATIENT
  Age: 83 Year
  Sex: Female

DRUGS (4)
  1. CLAMOXYL [Concomitant]
     Active Substance: AMOXICILLIN\CLAVULANIC ACID
     Indication: TOOTH INFECTION
     Dosage: UNK
     Dates: start: 201711
  2. AUGMENTIN [Suspect]
     Active Substance: AMOXICILLIN\CLAVULANATE POTASSIUM
     Indication: DIVERTICULITIS
     Dosage: UNK
     Dates: start: 20171216
  3. TAREG [Concomitant]
     Active Substance: VALSARTAN
     Indication: HYPERTENSION
     Dosage: 1 DF, QD
  4. CLARITINE 10 MG [Suspect]
     Active Substance: LORATADINE
     Indication: MULTIPLE ALLERGIES
     Dosage: 1 DF, QD

REACTIONS (7)
  - Product use issue [None]
  - Feeling hot [None]
  - Off label use [None]
  - Diverticulitis [None]
  - Vertigo [None]
  - Tooth infection [None]
  - Somnolence [None]

NARRATIVE: CASE EVENT DATE: 2017
